FAERS Safety Report 13962264 (Version 1)
Quarter: 2017Q3

REPORT INFORMATION
  Report Type: Report from Study
  Country: None (occurrence: HU)
  Receive Date: 20170912
  Receipt Date: 20170912
  Transmission Date: 20171128
  Serious: Yes (Hospitalization)
  Sender: FDA-Public Use
  Company Number: HU-ABBVIE-17K-076-2099261-00

PATIENT
  Age: 61 Year
  Sex: Male

DRUGS (11)
  1. NITRODERM [Concomitant]
     Active Substance: NITROGLYCERIN
     Indication: MYOCARDIAL ISCHAEMIA
     Dosage: 5MG/24H
     Route: 062
     Dates: start: 201702
  2. DUODOPA [Suspect]
     Active Substance: CARBIDOPA\LEVODOPA
     Indication: PARKINSON^S DISEASE
     Dosage: MORNING DOSE 6.0ML; CONTINUOUS DOSE 4.2ML/H;EXTRA DOSE 3.0ML
     Route: 050
     Dates: start: 20151124
  3. BEZALIP [Concomitant]
     Active Substance: BEZAFIBRATE
     Indication: HYPERLIPIDAEMIA
     Route: 048
     Dates: start: 201702
  4. DOMPERIDONE [Concomitant]
     Active Substance: DOMPERIDONE
     Indication: NAUSEA
     Route: 048
     Dates: start: 2013
  5. RIVOTRIL [Concomitant]
     Active Substance: CLONAZEPAM
     Indication: DEPRESSION
     Route: 048
     Dates: start: 2012
  6. BISOPROLOL-RATIOPHARM [Concomitant]
     Indication: HYPERTENSION
  7. PANTOPRAZOLE [Concomitant]
     Active Substance: PANTOPRAZOLE
     Indication: GASTROOESOPHAGEAL REFLUX DISEASE
     Route: 048
     Dates: start: 2012
  8. MYDETON [Concomitant]
     Indication: MUSCLE SPASMS
     Route: 048
     Dates: start: 201203
  9. BISOPROLOL-RATIOPHARM [Concomitant]
     Indication: ARRHYTHMIA
     Route: 048
     Dates: start: 2013
  10. AMILOZID [Concomitant]
     Indication: OEDEMA PERIPHERAL
     Dosage: 50/5 MG?1 TABLET AT A TIME
     Route: 048
     Dates: start: 2013
  11. AMILOZID [Concomitant]
     Indication: HYPERTENSION

REACTIONS (1)
  - General physical health deterioration [Not Recovered/Not Resolved]

NARRATIVE: CASE EVENT DATE: 201708
